FAERS Safety Report 18101833 (Version 3)
Quarter: 2020Q4

REPORT INFORMATION
  Report Type: Spontaneous
  Country: NZ (occurrence: NZ)
  Receive Date: 20200802
  Receipt Date: 20201216
  Transmission Date: 20210113
  Serious: Yes (Other)
  Sender: FDA-Public Use
  Company Number: NZ-BEH-2020120400

PATIENT
  Age: 80 Year
  Sex: Male
  Weight: 61 kg

DRUGS (17)
  1. PRIVIGEN [Suspect]
     Active Substance: HUMAN IMMUNOGLOBULIN G
     Dosage: 20 GR/200ML
     Route: 042
     Dates: start: 20190821
  2. PRIVIGEN [Suspect]
     Active Substance: HUMAN IMMUNOGLOBULIN G
     Dosage: 20 GRAM/ 200ML
     Route: 042
     Dates: start: 20191002
  3. PRIVIGEN [Suspect]
     Active Substance: HUMAN IMMUNOGLOBULIN G
     Dosage: 5 GRAM/ 50 ML
     Route: 042
     Dates: start: 20191223
  4. LORATADINE. [Concomitant]
     Active Substance: LORATADINE
     Indication: PREMEDICATION
     Dosage: 10 MILLIGRAM PRIOR TO IVIG INFUSION
     Dates: start: 20190501
  5. INTRAGAM P [Suspect]
     Active Substance: HUMAN IMMUNOGLOBULIN G
     Indication: PRODUCT USED FOR UNKNOWN INDICATION
     Route: 065
  6. PRIVIGEN [Suspect]
     Active Substance: HUMAN IMMUNOGLOBULIN G
     Dosage: 10 GR/ 100 ML
     Route: 042
     Dates: start: 20190606
  7. PRIVIGEN [Suspect]
     Active Substance: HUMAN IMMUNOGLOBULIN G
     Dosage: 5 GRAM/ 50ML
     Route: 042
     Dates: start: 20190821
  8. PRIVIGEN [Suspect]
     Active Substance: HUMAN IMMUNOGLOBULIN G
     Dosage: 10 GRAM/100ML
     Route: 042
     Dates: start: 20191113
  9. PRIVIGEN [Suspect]
     Active Substance: HUMAN IMMUNOGLOBULIN G
     Dosage: 20 GRAM/200ML
     Route: 042
     Dates: start: 20191223
  10. PRIVIGEN [Suspect]
     Active Substance: HUMAN IMMUNOGLOBULIN G
     Dosage: 5 GR/ 50 ML
     Route: 042
     Dates: start: 20191002
  11. PRIVIGEN [Suspect]
     Active Substance: HUMAN IMMUNOGLOBULIN G
     Dosage: 5 GRAM/ 50ML
     Route: 042
     Dates: start: 20191113
  12. PRIVIGEN [Suspect]
     Active Substance: HUMAN IMMUNOGLOBULIN G
     Dosage: 10 GRAM/100ML
     Route: 042
     Dates: start: 20200713
  13. PRIVIGEN [Suspect]
     Active Substance: HUMAN IMMUNOGLOBULIN G
     Dosage: 5 GRAM/50ML
     Route: 042
     Dates: start: 20200713
  14. PRIVIGEN [Suspect]
     Active Substance: HUMAN IMMUNOGLOBULIN G
     Dosage: 20 GRAM X 1 (200ML), TOT
     Route: 042
     Dates: start: 20191223, end: 20191223
  15. PRIVIGEN [Suspect]
     Active Substance: HUMAN IMMUNOGLOBULIN G
     Dosage: 5 GRAM/ 50ML
     Route: 042
     Dates: start: 20190710
  16. PRIVIGEN [Suspect]
     Active Substance: HUMAN IMMUNOGLOBULIN G
     Dosage: 20 GRAM/200ML
     Route: 042
     Dates: start: 20190710
  17. PRIVIGEN [Suspect]
     Active Substance: HUMAN IMMUNOGLOBULIN G
     Indication: MULTIFOCAL MOTOR NEUROPATHY
     Dosage: 5 GRAM X 1(50ML), TOT
     Route: 042
     Dates: start: 20191223, end: 20191223

REACTIONS (11)
  - Nausea [Recovered/Resolved]
  - Chills [Recovered/Resolved]
  - Asthenia [Recovered/Resolved]
  - Hypersensitivity [Unknown]
  - Incorrect drug administration rate [Unknown]
  - Pain of skin [Recovered/Resolved]
  - Feeling cold [Recovered/Resolved]
  - Loss of control of legs [Recovered/Resolved]
  - Memory impairment [Recovered/Resolved]
  - No adverse event [Unknown]
  - Nonspecific reaction [Unknown]

NARRATIVE: CASE EVENT DATE: 2019
